FAERS Safety Report 8790965 (Version 2)
Quarter: 2012Q4

REPORT INFORMATION
  Report Type: Spontaneous
  Country: DE (occurrence: None)
  Receive Date: 20120910
  Receipt Date: 20120924
  Transmission Date: 20130627
  Serious: Yes (Other)
  Sender: FDA-Public Use
  Company Number: AUR-APL-2012-03799

PATIENT
  Age: 70 Year
  Sex: Female

DRUGS (5)
  1. SIMVASTATIN (SIMVASTATIN) [Suspect]
     Indication: HYPERLIPOPROTEINEMIA
     Route: 048
     Dates: start: 20111115, end: 20120317
  2. INEGY [Suspect]
     Indication: HYPERLIPOPROTEINEMIA
     Route: 048
     Dates: start: 20120317, end: 20120328
  3. CERTICAN [Concomitant]
  4. PLAVIX (CLOPIDOGREL) [Concomitant]
  5. SANDIMMUN (CICLOSPORIN) INFUSION [Concomitant]

REACTIONS (2)
  - Blood creatine phosphokinase increased [None]
  - Musculoskeletal discomfort [None]
